FAERS Safety Report 6842864-8 (Version None)
Quarter: 2010Q3

REPORT INFORMATION
  Report Type: 
  Country: None (occurrence: None)
  Receive Date: 20100714
  Receipt Date: 20070810
  Transmission Date: 20110219
  Serious: No
  Sender: FDA-Public Use
  Company Number: US-PFIZER INC-2007066561

PATIENT
  Sex: Female
  Weight: 74.8 kg

DRUGS (6)
  1. CHANTIX [Suspect]
     Indication: SMOKING CESSATION THERAPY
     Dates: start: 20070805
  2. ALL OTHER THERAPEUTIC PRODUCTS [Concomitant]
     Indication: CHRONIC OBSTRUCTIVE PULMONARY DISEASE
  3. ALBUTEROL [Concomitant]
  4. ADVAIR DISKUS 100/50 [Concomitant]
  5. MONTELUKAST SODIUM [Concomitant]
  6. ZYRTEC [Concomitant]

REACTIONS (4)
  - CRYING [None]
  - FEELING ABNORMAL [None]
  - NAUSEA [None]
  - TEARFULNESS [None]
